FAERS Safety Report 4346282-6 (Version None)
Quarter: 2004Q2

REPORT INFORMATION
  Report Type: 
  Country: None (occurrence: None)
  Receive Date: 20040423
  Receipt Date: 20040423
  Transmission Date: 20050107
  Serious: Yes (Life-Threatening, Hospitalization)
  Sender: FDA-Public Use
  Company Number: None

PATIENT
  Age: 47 Year
  Sex: Female
  Weight: 72.5755 kg

DRUGS (2)
  1. WELLBUTRIN [Suspect]
     Indication: AFFECTIVE DISORDER
     Dosage: 150 MG/ PO
     Route: 048
     Dates: start: 20040301, end: 20040409
  2. WELLBUTRIN [Suspect]
     Indication: PAIN
     Dosage: 150 MG/ PO
     Route: 048
     Dates: start: 20040301, end: 20040409

REACTIONS (7)
  - ARRHYTHMIA [None]
  - CHEST PAIN [None]
  - DIZZINESS [None]
  - DYSPNOEA [None]
  - HEART RATE INCREASED [None]
  - PALLOR [None]
  - SUPRAVENTRICULAR TACHYCARDIA [None]
